FAERS Safety Report 7010432 (Version 2)
Quarter: 2014Q3

REPORT INFORMATION
  Report Type: Spontaneous
  Country: US (occurrence: None)
  Receive Date: 20090526
  Receipt Date: 20140725
  Transmission Date: 20150326
  Serious: Yes (Other)
  Sender: FDA-Public Use
  Company Number: 2009S1004070

PATIENT
  Age: 49 Year
  Sex: Female

DRUGS (6)
  1. PHOSPHO-SODA [Suspect]
     Active Substance: SODIUM PHOSPHATE, DIBASIC\SODIUM PHOSPHATE, MONOBASIC
     Indication: COLONOSCOPY
     Dosage: PO
     Route: 048
     Dates: start: 20060622, end: 20060622
  2. ALLEGRA (FEXOFENADINE HYDROCHLORIDE) [Concomitant]
  3. LISINOPRIL (LISINOPRIL DIHYDRATE) (UNKNOWN [Concomitant]
     Active Substance: LISINOPRIL
  4. DULCOLAX (BISACODYL) [Suspect]
     Active Substance: BISACODYL
     Indication: COLONOSCOPY
     Route: 048
     Dates: start: 20060622, end: 20060622
  5. ZELNORM [Suspect]
     Active Substance: TEGASEROD MALEATE
     Indication: COLONOSCOPY
     Route: 048
     Dates: start: 20060622, end: 20060622
  6. TENORETIC (CHLORTALIDONE, ATENOLOL) [Concomitant]

REACTIONS (7)
  - Renal failure chronic [None]
  - Dehydration [None]
  - Abdominal pain upper [None]
  - Rhinorrhoea [None]
  - Vomiting [None]
  - Nausea [None]
  - Malaise [None]

NARRATIVE: CASE EVENT DATE: 20060628
